FAERS Safety Report 8074558-8 (Version None)
Quarter: 2012Q1

REPORT INFORMATION
  Report Type: 
  Country: None (occurrence: None)
  Receive Date: 20120126
  Receipt Date: 20120123
  Transmission Date: 20120608
  Serious: No
  Sender: FDA-Public Use
  Company Number: US-BAYER-2012-008386

PATIENT
  Sex: Female

DRUGS (5)
  1. ALEVE (CAPLET) [Suspect]
     Dosage: 1 TAB
     Route: 048
  2. LATUDA [Concomitant]
  3. ZOCOR [Concomitant]
  4. ZOLOFT [Concomitant]
  5. BENAZEPRIL HYDROCHLORIDE [Concomitant]

REACTIONS (1)
  - RHINORRHOEA [None]
